FAERS Safety Report 19018248 (Version 6)
Quarter: 2021Q3

REPORT INFORMATION
  Report Type: Report from Study
  Country: US (occurrence: US)
  Receive Date: 20210317
  Receipt Date: 20210702
  Transmission Date: 20211014
  Serious: Yes (Other)
  Sender: FDA-Public Use
  Company Number: NVSC2021US060088

PATIENT
  Sex: Female

DRUGS (2)
  1. KISQALI [Suspect]
     Active Substance: RIBOCICLIB
     Indication: PRODUCT USED FOR UNKNOWN INDICATION
     Dosage: UNK (VIA MOUTH)
     Route: 048
     Dates: start: 20210301
  2. LETROZOLE. [Suspect]
     Active Substance: LETROZOLE
     Indication: PRODUCT USED FOR UNKNOWN INDICATION
     Dosage: UNK (VIA MOUTH)
     Route: 048

REACTIONS (9)
  - Metastases to liver [Unknown]
  - Nausea [Unknown]
  - Memory impairment [Unknown]
  - Metastases to central nervous system [Unknown]
  - Metastases to lung [Unknown]
  - Diarrhoea [Unknown]
  - Metastases to pleura [Unknown]
  - Fatigue [Unknown]
  - Muscle spasms [Unknown]
